FAERS Safety Report 7717723-9 (Version None)
Quarter: 2011Q3

REPORT INFORMATION
  Report Type: 
  Country: None (occurrence: None)
  Receive Date: 20110830
  Receipt Date: 20100315
  Transmission Date: 20111222
  Serious: No
  Sender: FDA-Public Use
  Company Number: US-BAYER-201017690NA

PATIENT
  Age: 26 Year
  Sex: Female

DRUGS (1)
  1. MIRENA [Suspect]
     Indication: CONTRACEPTION
     Dosage: 20 ?G/D, CONT
     Route: 015
     Dates: start: 20091204

REACTIONS (8)
  - GENITAL INFECTION BACTERIAL [None]
  - CHILLS [None]
  - GENITAL INFECTION FUNGAL [None]
  - ABDOMINAL PAIN UPPER [None]
  - VAGINAL HAEMORRHAGE [None]
  - BREAST DISCHARGE [None]
  - BREAST TENDERNESS [None]
  - VAGINAL DISCHARGE [None]
